FAERS Safety Report 7961177-4 (Version None)
Quarter: 2011Q4

REPORT INFORMATION
  Report Type: 
  Country: None (occurrence: None)
  Receive Date: 20111207
  Receipt Date: 20111205
  Transmission Date: 20120403
  Serious: Yes (Death)
  Sender: FDA-Public Use
  Company Number: DE-PFIZER INC-2011297203

PATIENT

DRUGS (3)
  1. ALCOHOL [Concomitant]
     Dosage: UNK
  2. METHADONE [Concomitant]
     Dosage: UNK
  3. LYRICA [Suspect]
     Dosage: UNK

REACTIONS (1)
  - DEATH [None]
